FAERS Safety Report 24347577 (Version 1)
Quarter: 2024Q3

REPORT INFORMATION
  Report Type: Spontaneous
  Country: US (occurrence: US)
  Receive Date: 20240922
  Receipt Date: 20240922
  Transmission Date: 20241017
  Serious: Yes (Other)
  Sender: SANOFI AVENTIS
  Company Number: US-SA-2024SA271403

PATIENT
  Age: 58 Year
  Sex: Female
  Weight: 74.55 kg

DRUGS (1)
  1. DUPIXENT [Suspect]
     Active Substance: DUPILUMAB
     Indication: Dermatitis atopic
     Dosage: 300 MG, QOW
     Route: 058

REACTIONS (3)
  - Pneumonia [Recovered/Resolved]
  - Erythema of eyelid [Recovering/Resolving]
  - Eyelids pruritus [Recovering/Resolving]

NARRATIVE: CASE EVENT DATE: 20240701
